FAERS Safety Report 24342716 (Version 1)
Quarter: 2024Q3

REPORT INFORMATION
  Report Type: Spontaneous
  Country: US (occurrence: US)
  Receive Date: 20240920
  Receipt Date: 20240920
  Transmission Date: 20241017
  Serious: Yes (Other)
  Sender: MYLAN
  Company Number: US-MYLANLABS-2024M1083730

PATIENT
  Age: 77 Year
  Sex: Male

DRUGS (10)
  1. RIFAMPIN [Suspect]
     Active Substance: RIFAMPIN
     Indication: Borderline leprosy
     Dosage: 600 MILLIGRAM, MONTHLY
     Route: 065
  2. RIFAMPIN [Suspect]
     Active Substance: RIFAMPIN
     Indication: Lepromatous leprosy
  3. MOXIFLOXACIN [Suspect]
     Active Substance: MOXIFLOXACIN
     Indication: Borderline leprosy
     Dosage: 400 MILLIGRAM, MONTHLY
     Route: 065
  4. MOXIFLOXACIN [Suspect]
     Active Substance: MOXIFLOXACIN
     Indication: Lepromatous leprosy
  5. MINOCYCLINE [Suspect]
     Active Substance: MINOCYCLINE HYDROCHLORIDE
     Indication: Borderline leprosy
     Dosage: 100 MILLIGRAM, MONTHLY
     Route: 065
  6. MINOCYCLINE [Suspect]
     Active Substance: MINOCYCLINE HYDROCHLORIDE
     Indication: Lepromatous leprosy
  7. PREDNISONE [Concomitant]
     Active Substance: PREDNISONE
     Indication: Type IV hypersensitivity reaction
     Dosage: RECEIVED LOW DOSE
     Route: 065
  8. PREDNISONE [Concomitant]
     Active Substance: PREDNISONE
     Indication: Type 2 lepra reaction
  9. METHOTREXATE [Concomitant]
     Active Substance: METHOTREXATE
     Indication: Type IV hypersensitivity reaction
     Dosage: RECEIVED LOW DOSE
     Route: 065
  10. METHOTREXATE [Concomitant]
     Active Substance: METHOTREXATE
     Indication: Type 2 lepra reaction

REACTIONS (3)
  - Type 2 lepra reaction [Unknown]
  - Type IV hypersensitivity reaction [Unknown]
  - Gastrointestinal disorder [Unknown]
